FAERS Safety Report 24365756 (Version 1)
Quarter: 2024Q3

REPORT INFORMATION
  Report Type: Spontaneous
  Country: US (occurrence: US)
  Receive Date: 20240926
  Receipt Date: 20240926
  Transmission Date: 20241016
  Serious: Yes (Other)
  Sender: BAYER
  Company Number: US-BAYER-2024A132183

PATIENT
  Age: 24 Month
  Sex: Male

DRUGS (1)
  1. ALEVE-D SINUS AND HEADACHE [Suspect]
     Active Substance: NAPROXEN SODIUM\PSEUDOEPHEDRINE HYDROCHLORIDE
     Dosage: UNK
     Dates: start: 20240914

REACTIONS (2)
  - Adverse event [Recovered/Resolved]
  - Product use issue [None]

NARRATIVE: CASE EVENT DATE: 20240914
